FAERS Safety Report 13499414 (Version 1)
Quarter: 2017Q2

REPORT INFORMATION
  Report Type: Spontaneous
  Country: NL (occurrence: NL)
  Receive Date: 20170501
  Receipt Date: 20170501
  Transmission Date: 20170830
  Serious: Yes (Other)
  Sender: FDA-Public Use
  Company Number: NL-MYLANLABS-2017M1019191

PATIENT

DRUGS (1)
  1. METHYLFENIDAAT HCL MYLAN RETARD 54 MG, TABLETTEN MET VERLENGDE AFGIFTE [Suspect]
     Active Substance: METHYLPHENIDATE HYDROCHLORIDE
     Indication: ATTENTION DEFICIT/HYPERACTIVITY DISORDER
     Dosage: 2DD1
     Route: 048
     Dates: start: 20170303, end: 20170303

REACTIONS (9)
  - Nausea [Recovering/Resolving]
  - Coeliac disease [Unknown]
  - Fatigue [Recovering/Resolving]
  - Skin discolouration [Recovering/Resolving]
  - Hyperhidrosis [Recovering/Resolving]
  - Mydriasis [Recovering/Resolving]
  - Psychomotor hyperactivity [Recovering/Resolving]
  - Disinhibition [Recovering/Resolving]
  - Cyanosis [Recovering/Resolving]

NARRATIVE: CASE EVENT DATE: 20170303
